FAERS Safety Report 20476590 (Version 1)
Quarter: 2022Q1

REPORT INFORMATION
  Report Type: Other
  Country: FR (occurrence: FR)
  Receive Date: 20220215
  Receipt Date: 20220215
  Transmission Date: 20220423
  Serious: Yes (Hospitalization, Other)
  Sender: FDA-Public Use
  Company Number: FR-ROCHE-2798074

PATIENT
  Age: 65 Year
  Sex: Male

DRUGS (16)
  1. MYCOPHENOLATE MOFETIL [Suspect]
     Active Substance: MYCOPHENOLATE MOFETIL
     Indication: Immunosuppressant drug therapy
     Route: 065
  2. TACROLIMUS [Suspect]
     Active Substance: TACROLIMUS
     Indication: Immunosuppressant drug therapy
     Dosage: 0.15 MG/KG WITH RESIDUAL TARGET BETWEEN 8 AND 10 NG/ML
     Route: 065
  3. VORICONAZOLE [Suspect]
     Active Substance: VORICONAZOLE
     Indication: Osteomyelitis fungal
     Dosage: BID
     Route: 048
  4. VORICONAZOLE [Suspect]
     Active Substance: VORICONAZOLE
     Indication: Disseminated aspergillosis
     Dosage: 8 MILLIGRAM/KILOGRAM, QD (4 MG/KG, BID 12 H)
     Route: 065
  5. VORICONAZOLE [Suspect]
     Active Substance: VORICONAZOLE
     Indication: Mediastinitis
     Dosage: 4 MILLIGRAM/KILOGRAM, QOD
     Route: 042
  6. VORICONAZOLE [Suspect]
     Active Substance: VORICONAZOLE
     Indication: Aspergillus infection
     Dosage: 4 MILLIGRAM/KILOGRAM, BID
     Route: 042
  7. VORICONAZOLE [Suspect]
     Active Substance: VORICONAZOLE
     Indication: Bronchopulmonary aspergillosis
     Dosage: 6 MILLIGRAM/KILOGRAM, QOD
     Route: 042
  8. VORICONAZOLE [Suspect]
     Active Substance: VORICONAZOLE
     Indication: Osteomyelitis fungal
     Dosage: 12 MILLIGRAM/KILOGRAM, QD (6 MG/KG, BID 12 H, ON FIRST DAY)
     Route: 065
  9. VORICONAZOLE [Suspect]
     Active Substance: VORICONAZOLE
     Dosage: BID (6 MG/KG/12 H THE FIRST DAY THEN 4 MG/KG/12 H FOR 7 DAYS
     Route: 042
  10. VORICONAZOLE [Suspect]
     Active Substance: VORICONAZOLE
     Dosage: 6 MILLIGRAM/KILOGRAM, BID
     Route: 042
  11. PREDNISONE [Suspect]
     Active Substance: PREDNISONE
     Indication: Immunosuppressant drug therapy
     Route: 065
  12. DAPTOMYCIN [Concomitant]
     Active Substance: DAPTOMYCIN
  13. PIPERACILLIN SODIUM\TAZOBACTAM SODIUM [Concomitant]
     Active Substance: PIPERACILLIN SODIUM\TAZOBACTAM SODIUM
     Dosage: 4 G/0.5 G
  14. ISAVUCONAZOLE [Concomitant]
     Active Substance: ISAVUCONAZOLE
     Indication: Osteomyelitis fungal
     Dosage: 200 MILLIGRAM (INITIAL LOADING DOSE 3 TIMES FOR 48 HRS)
     Route: 042
  15. ISAVUCONAZOLE [Concomitant]
     Active Substance: ISAVUCONAZOLE
     Indication: Mediastinitis
     Dosage: 200 MILLIGRAM, QD
     Route: 065
  16. ISAVUCONAZOLE [Concomitant]
     Active Substance: ISAVUCONAZOLE
     Indication: Disseminated aspergillosis

REACTIONS (12)
  - Skin toxicity [Recovered/Resolved]
  - Disseminated aspergillosis [Recovered/Resolved]
  - Peripheral sensory neuropathy [Recovered/Resolved]
  - Aspergillus infection [Recovered/Resolved]
  - Off label use [Unknown]
  - Neurotoxicity [Recovered/Resolved]
  - Photosensitivity reaction [Recovered/Resolved]
  - Osteomyelitis fungal [Recovered/Resolved]
  - Acute kidney injury [Recovered/Resolved]
  - Osteomyelitis fungal [Recovered/Resolved]
  - Soft tissue infection [Recovered/Resolved]
  - Skin infection [Recovered/Resolved]
